FAERS Safety Report 18068268 (Version 1)
Quarter: 2020Q3

REPORT INFORMATION
  Report Type: Spontaneous
  Country: US (occurrence: US)
  Receive Date: 20200724
  Receipt Date: 20200724
  Transmission Date: 20201103
  Serious: No
  Sender: FDA-Public Use
  Company Number: US-INCYTE CORPORATION-2020IN006920

PATIENT

DRUGS (2)
  1. JAKAFI [Suspect]
     Active Substance: RUXOLITINIB
     Indication: ALOPECIA
  2. JAKAFI [Suspect]
     Active Substance: RUXOLITINIB
     Indication: ALOPECIA UNIVERSALIS
     Dosage: 10 MILLIGRAM, BID
     Route: 048
     Dates: start: 202007

REACTIONS (1)
  - Off label use [Unknown]

NARRATIVE: CASE EVENT DATE: 202007
